FAERS Safety Report 22339337 (Version 2)
Quarter: 2024Q1

REPORT INFORMATION
  Report Type: Report from Study
  Country: US (occurrence: US)
  Receive Date: 20230518
  Receipt Date: 20240308
  Transmission Date: 20240410
  Serious: Yes (Other)
  Sender: FDA-Public Use
  Company Number: US-JAZZ PHARMACEUTICALS-2022-US-029748

PATIENT
  Age: 24 Year
  Sex: Female

DRUGS (36)
  1. XYWAV [Suspect]
     Active Substance: CALCIUM OXYBATE\MAGNESIUM OXYBATE\POTASSIUM OXYBATE\SODIUM OXYBATE
     Indication: Hypersomnia
     Dosage: 2.25 GRAM, BID
     Dates: start: 20220910
  2. XYWAV [Suspect]
     Active Substance: CALCIUM OXYBATE\MAGNESIUM OXYBATE\POTASSIUM OXYBATE\SODIUM OXYBATE
     Dosage: 2.75 GRAM
  3. XYWAV [Suspect]
     Active Substance: CALCIUM OXYBATE\MAGNESIUM OXYBATE\POTASSIUM OXYBATE\SODIUM OXYBATE
     Dosage: 3 GRAM, BID
  4. XYWAV [Suspect]
     Active Substance: CALCIUM OXYBATE\MAGNESIUM OXYBATE\POTASSIUM OXYBATE\SODIUM OXYBATE
     Dosage: 2.5 GRAM, BID
  5. XYWAV [Suspect]
     Active Substance: CALCIUM OXYBATE\MAGNESIUM OXYBATE\POTASSIUM OXYBATE\SODIUM OXYBATE
     Dosage: 3.25 GRAM, BID AND INCREASES BY 0.25G TWICE NIGHTLY EVERY 2 WEEKS
  6. XYWAV [Suspect]
     Active Substance: CALCIUM OXYBATE\MAGNESIUM OXYBATE\POTASSIUM OXYBATE\SODIUM OXYBATE
     Dosage: 3.75 GRAM, BID
  7. XYWAV [Suspect]
     Active Substance: CALCIUM OXYBATE\MAGNESIUM OXYBATE\POTASSIUM OXYBATE\SODIUM OXYBATE
     Dosage: 3.5 GRAMS AT BEDTIME AND 3.25 GRAMS FOR THE SECOND DOSE
  8. XYWAV [Suspect]
     Active Substance: CALCIUM OXYBATE\MAGNESIUM OXYBATE\POTASSIUM OXYBATE\SODIUM OXYBATE
     Dosage: 1.5G
  9. XYWAV [Suspect]
     Active Substance: CALCIUM OXYBATE\MAGNESIUM OXYBATE\POTASSIUM OXYBATE\SODIUM OXYBATE
     Dosage: 1.25G OR 1.5G
  10. SUCRALOSE [Suspect]
     Active Substance: SUCRALOSE
     Indication: Product used for unknown indication
     Dosage: UNK
  11. FLUTICASONE PROPIONATE [Concomitant]
     Active Substance: FLUTICASONE PROPIONATE
     Indication: Product used for unknown indication
     Dosage: UNK
     Dates: start: 20220630
  12. DEXTROAMPHETAMINE [Concomitant]
     Active Substance: DEXTROAMPHETAMINE
     Indication: Product used for unknown indication
     Dosage: UNK
  13. DEXTROAMPHETAMINE [Concomitant]
     Active Substance: DEXTROAMPHETAMINE
     Dosage: UNK
  14. BACLOFEN [Concomitant]
     Active Substance: BACLOFEN
     Indication: Product used for unknown indication
     Dosage: UNK
  15. BACLOFEN [Concomitant]
     Active Substance: BACLOFEN
     Dosage: UNK
  16. BUPROPION HYDROCHLORIDE [Concomitant]
     Active Substance: BUPROPION HYDROCHLORIDE
     Indication: Product used for unknown indication
     Dosage: UNK
  17. BUPROPION HYDROCHLORIDE [Concomitant]
     Active Substance: BUPROPION HYDROCHLORIDE
     Dosage: UNK
  18. CLONAZEPAM [Concomitant]
     Active Substance: CLONAZEPAM
     Indication: Product used for unknown indication
     Dosage: UNK
  19. CLONAZEPAM [Concomitant]
     Active Substance: CLONAZEPAM
     Dosage: UNK
  20. FAMOTIDINE [Concomitant]
     Active Substance: FAMOTIDINE
     Indication: Product used for unknown indication
     Dosage: UNK
  21. FAMOTIDINE [Concomitant]
     Active Substance: FAMOTIDINE
     Dosage: UNK
  22. HYDROCORTISONE [Concomitant]
     Active Substance: HYDROCORTISONE
     Indication: Product used for unknown indication
     Dosage: UNK
  23. HYDROCORTISONE [Concomitant]
     Active Substance: HYDROCORTISONE
     Dosage: UNK
  24. NORETHINDRONE ACETATE [Concomitant]
     Active Substance: NORETHINDRONE ACETATE
     Indication: Product used for unknown indication
     Dosage: UNK
  25. NORETHINDRONE ACETATE [Concomitant]
     Active Substance: NORETHINDRONE ACETATE
     Dosage: UNK
  26. SPIRONOLACTONE [Concomitant]
     Active Substance: SPIRONOLACTONE
     Indication: Product used for unknown indication
     Dosage: UNK
  27. SPIRONOLACTONE [Concomitant]
     Active Substance: SPIRONOLACTONE
     Dosage: UNK
  28. TRETINOIN [Concomitant]
     Active Substance: TRETINOIN
     Indication: Product used for unknown indication
     Dosage: UNK
  29. TRETINOIN [Concomitant]
     Active Substance: TRETINOIN
     Dosage: UNK
  30. VITAMIN D2 [Concomitant]
     Active Substance: ERGOCALCIFEROL
     Indication: Product used for unknown indication
     Dosage: UNK
     Dates: start: 20231108
  31. VITAMIN D2 [Concomitant]
     Active Substance: ERGOCALCIFEROL
     Indication: Product used for unknown indication
  32. DIETARY SUPPLEMENT [Concomitant]
     Active Substance: DIETARY SUPPLEMENT
     Indication: Product used for unknown indication
     Dosage: UNK
     Dates: start: 20231108
  33. MAGNESIUM AAA [Concomitant]
     Indication: Product used for unknown indication
     Dosage: UNK
     Dates: start: 20231108
  34. FISH OIL [Concomitant]
     Active Substance: FISH OIL
     Indication: Product used for unknown indication
     Dosage: UNK
     Dates: start: 20231108
  35. DIGESTIVE ENZYMES [BETAINE HYDROCHLORIDE;BROMELAINS;CELLULASE;PANCREAT [Concomitant]
     Indication: Product used for unknown indication
     Dosage: UNK
     Dates: start: 20231108
  36. CINNAMON\HERBALS [Concomitant]
     Active Substance: CINNAMON\HERBALS
     Indication: Product used for unknown indication
     Dosage: UNK
     Dates: start: 20231108

REACTIONS (20)
  - Nephrolithiasis [Unknown]
  - Sensation of foreign body [Unknown]
  - Feeling hot [Unknown]
  - Nasopharyngitis [Unknown]
  - Illness [Recovering/Resolving]
  - Drug intolerance [Recovering/Resolving]
  - Feeling abnormal [Unknown]
  - Dyspnoea [Unknown]
  - Headache [Unknown]
  - Dizziness [Unknown]
  - Hyperhidrosis [Unknown]
  - Tremor [Unknown]
  - Nausea [Unknown]
  - Fatigue [Unknown]
  - Asthenia [Unknown]
  - Dyspnoea [Unknown]
  - Drug ineffective [Unknown]
  - Intentional product use issue [Unknown]
  - Intentional dose omission [Unknown]
  - Product administration interrupted [Unknown]

NARRATIVE: CASE EVENT DATE: 20221101
